FAERS Safety Report 5520964-2 (Version None)
Quarter: 2007Q4

REPORT INFORMATION
  Report Type: 
  Country: None (occurrence: None)
  Receive Date: 20071119
  Receipt Date: 20071116
  Transmission Date: 20080405
  Serious: Yes (Death, Hospitalization)
  Sender: FDA-Public Use
  Company Number: US-BRISTOL-MYERS SQUIBB COMPANY-13985049

PATIENT
  Age: 66 Year
  Sex: Male
  Weight: 88 kg

DRUGS (13)
  1. ERBITUX [Suspect]
     Indication: COLON CANCER
     Route: 042
     Dates: start: 20070925, end: 20070925
  2. LEUCOVORIN CALCIUM [Suspect]
     Indication: COLON CANCER
     Route: 042
     Dates: start: 20070925, end: 20070925
  3. FLUOROURACIL [Suspect]
     Indication: COLON CANCER
     Route: 042
     Dates: start: 20070925, end: 20070927
  4. OXALIPLATIN [Suspect]
     Indication: COLON CANCER
     Route: 042
     Dates: start: 20070925, end: 20070925
  5. COUMADIN [Concomitant]
  6. ENALAPRIL MALEATE [Concomitant]
  7. FERROUS SULFATE TAB [Concomitant]
  8. KLOR-CON [Concomitant]
  9. LACTULOSE [Concomitant]
  10. MEGACE [Concomitant]
  11. PERCOCET [Concomitant]
  12. REGLAN [Concomitant]
  13. VITAMIN E [Concomitant]

REACTIONS (8)
  - ABDOMINAL PAIN [None]
  - ANOREXIA [None]
  - ASCITES [None]
  - DEATH [None]
  - FATIGUE [None]
  - HYPOTENSION [None]
  - NAUSEA [None]
  - VOMITING [None]
